FAERS Safety Report 11999984 (Version 2)
Quarter: 2016Q2

REPORT INFORMATION
  Report Type: Spontaneous
  Country: US (occurrence: US)
  Receive Date: 20160204
  Receipt Date: 20160506
  Transmission Date: 20160815
  Serious: Yes (Death, Hospitalization, Other)
  Sender: FDA-Public Use
  Company Number: US-ENDO PHARMACEUTICALS INC.-2016-000800

PATIENT
  Age: 53 Year
  Sex: Male
  Weight: 129.39 kg

DRUGS (8)
  1. DELATESTRYL [Suspect]
     Active Substance: TESTOSTERONE ENANTHATE
     Indication: ANDROGEN REPLACEMENT THERAPY
     Route: 030
     Dates: start: 20001013, end: 20021107
  2. DELATESTRYL [Suspect]
     Active Substance: TESTOSTERONE ENANTHATE
     Route: 030
     Dates: start: 20130802, end: 20140723
  3. DEPO-TESTOSTERONE [Suspect]
     Active Substance: TESTOSTERONE CYPIONATE
     Route: 065
     Dates: start: 20110708, end: 20111027
  4. ANDRODERM [Suspect]
     Active Substance: TESTOSTERONE
     Indication: ANDROGEN REPLACEMENT THERAPY
     Route: 065
     Dates: start: 20050328, end: 20051028
  5. DEPO-TESTOSTERONE [Suspect]
     Active Substance: TESTOSTERONE CYPIONATE
     Indication: ANDROGEN REPLACEMENT THERAPY
     Route: 065
     Dates: start: 20080214, end: 20090127
  6. DEPO-TESTOSTERONE [Suspect]
     Active Substance: TESTOSTERONE CYPIONATE
     Route: 065
     Dates: start: 20101024, end: 20101124
  7. DEPO-TESTOSTERONE [Suspect]
     Active Substance: TESTOSTERONE CYPIONATE
     Route: 065
     Dates: start: 20140718, end: 20140921
  8. ANDROGEL [Suspect]
     Active Substance: TESTOSTERONE
     Indication: ANDROGEN REPLACEMENT THERAPY
     Route: 065
     Dates: start: 20050427, end: 20050917

REACTIONS (9)
  - Pulmonary embolism [Unknown]
  - Lacunar stroke [Unknown]
  - Heart rate irregular [Unknown]
  - Pulmonary embolism [Unknown]
  - Cardiac arrest [Fatal]
  - Lacunar infarction [Unknown]
  - Transient ischaemic attack [Unknown]
  - Pulmonary embolism [Unknown]
  - Angina pectoris [Unknown]

NARRATIVE: CASE EVENT DATE: 20011026
